FAERS Safety Report 9837697 (Version 1)
Quarter: 2013Q4

REPORT INFORMATION
  Report Type: Spontaneous
  Country: US (occurrence: None)
  Receive Date: 20131204
  Receipt Date: 20131204
  Transmission Date: 20140711
  Serious: Yes (Hospitalization)
  Sender: FDA-Public Use
  Company Number: 1643038

PATIENT
  Age: 71 Year
  Sex: Male
  Weight: 92.1 kg

DRUGS (7)
  1. NIPENT [Suspect]
     Indication: CHRONIC LYMPHOCYTIC LEUKAEMIA
     Dosage: 8.6 MG MILLIGRAM (S) (1 DAY) INTRAVENOUS (NOT OTHERWISE SPECIFIED)
     Route: 042
     Dates: start: 20130305, end: 20130305
  2. NIPENT [Suspect]
     Dosage: 8.6 MG MILLIGRAM (S) (1 DAY) INTRAVENOUS (NOT OTHERWISE SPECIFIED)
     Route: 042
     Dates: start: 20130305, end: 20130305
  3. (CYCLOPHOSPHAMIDE) [Concomitant]
     Indication: CHRONIC LYMPHOCYTIC LEUKAEMIA
     Dosage: 1280 MG MILLIGRAM(S) (1 DAY) INTRAVENOUS (NOT OTHERWISE SPECIFIED)?
     Route: 042
     Dates: start: 20130305, end: 20130305
  4. RITUXIMAB [Suspect]
     Indication: CHRONIC LYMPHOCYTIC LEUKAEMIA
     Dosage: 800 MG MILLIGRAM (S) (1 DAY) INTRAVENOUS (NOT OTHERWISE SPECIFIED)
     Route: 042
     Dates: start: 20130305, end: 20130305
  5. (CARVEDILOL) [Concomitant]
  6. (SPIRONOLACTONE) [Concomitant]
  7. (NEULASTA) [Concomitant]

REACTIONS (1)
  - Lung infection [None]
